FAERS Safety Report 8212932-7 (Version None)
Quarter: 2012Q1

REPORT INFORMATION
  Report Type: 
  Country: None (occurrence: None)
  Receive Date: 20120315
  Receipt Date: 20120307
  Transmission Date: 20120608
  Serious: Yes (Hospitalization)
  Sender: FDA-Public Use
  Company Number: KR-SANOFI-AVENTIS-2012SA016497

PATIENT
  Age: 75 Year
  Sex: Male
  Weight: 53.95 kg

DRUGS (2)
  1. ALFUZOSIN HCL [Suspect]
     Route: 048
     Dates: start: 20120207, end: 20120305
  2. AMBROXOL [Concomitant]
     Indication: BRONCHIECTASIS
     Route: 048
     Dates: start: 20100503

REACTIONS (1)
  - COLON CANCER [None]
